FAERS Safety Report 9110898 (Version 1)
Quarter: 2013Q1

REPORT INFORMATION
  Report Type: Spontaneous
  Country: US (occurrence: US)
  Receive Date: 20130219
  Receipt Date: 20130219
  Transmission Date: 20140127
  Serious: No
  Sender: FDA-Public Use
  Company Number: US-BRISTOL-MYERS SQUIBB COMPANY-16722324

PATIENT
  Age: 50 Year
  Sex: Female
  Weight: 67.12 kg

DRUGS (1)
  1. ABATACEPT SUBQ INJECTION 125MG/ML [Suspect]
     Indication: RHEUMATOID ARTHRITIS
     Route: 058
     Dates: start: 20120621

REACTIONS (3)
  - Urinary tract infection [Unknown]
  - Pain [Unknown]
  - Hypokinesia [Unknown]
